FAERS Safety Report 20708140 (Version 1)
Quarter: 2022Q2

REPORT INFORMATION
  Report Type: Spontaneous
  Country: US (occurrence: US)
  Receive Date: 20220414
  Receipt Date: 20220414
  Transmission Date: 20220721
  Serious: No
  Sender: FDA-Public Use
  Company Number: US-TEVA-2022-US-2019053

PATIENT
  Age: 65 Year
  Sex: Female

DRUGS (1)
  1. COPAXONE [Suspect]
     Active Substance: GLATIRAMER ACETATE
     Dosage: FORM STRENGTH-UNKNOWN
     Route: 065

REACTIONS (6)
  - Muscular weakness [Unknown]
  - Fall [Unknown]
  - Mobility decreased [Unknown]
  - Rash [Unknown]
  - Dizziness [Unknown]
  - Urinary tract infection [Unknown]
